FAERS Safety Report 20631608 (Version 2)
Quarter: 2022Q1

REPORT INFORMATION
  Report Type: Spontaneous
  Country: CN (occurrence: CN)
  Receive Date: 20220324
  Receipt Date: 20220329
  Transmission Date: 20220423
  Serious: Yes (Hospitalization, Other)
  Sender: FDA-Public Use
  Company Number: CN-009507513-2203CHN006536

PATIENT
  Age: 84 Year
  Sex: Male
  Weight: 83 kg

DRUGS (4)
  1. KEYTRUDA [Suspect]
     Active Substance: PEMBROLIZUMAB
     Indication: Bladder cancer recurrent
     Dosage: 200 MILLIGRAM, EVERY 30 DAYS
     Route: 041
     Dates: start: 20210609, end: 20211025
  2. KEYTRUDA [Suspect]
     Active Substance: PEMBROLIZUMAB
     Dosage: 100 MILLIGRAM, EVERY 30 DAYS
     Route: 041
     Dates: start: 20211122, end: 20211122
  3. KEYTRUDA [Suspect]
     Active Substance: PEMBROLIZUMAB
     Dosage: 100 MILLIGRAM, EVERY 30 DAYS
     Route: 041
     Dates: start: 20211221, end: 20211221
  4. PACLITAXEL [Suspect]
     Active Substance: PACLITAXEL
     Indication: Bladder cancer recurrent
     Dosage: 200 MILLIGRAM
     Route: 041

REACTIONS (15)
  - Supraventricular extrasystoles [Unknown]
  - Supraventricular tachycardia [Unknown]
  - Atrial flutter [Unknown]
  - Ventricular extrasystoles [Unknown]
  - Cerebral ischaemia [Unknown]
  - Atrial fibrillation [Unknown]
  - Dermatitis allergic [Recovering/Resolving]
  - Urinary tract infection [Unknown]
  - Cholelithiasis [Unknown]
  - Underdose [Unknown]
  - Inappropriate schedule of product administration [Unknown]
  - Inappropriate schedule of product administration [Unknown]
  - Inappropriate schedule of product administration [Unknown]
  - Inappropriate schedule of product administration [Unknown]
  - Inappropriate schedule of product administration [Unknown]

NARRATIVE: CASE EVENT DATE: 20210821
